FAERS Safety Report 9186803 (Version 1)
Quarter: 2013Q1

REPORT INFORMATION
  Report Type: Report from Study
  Country: US (occurrence: US)
  Receive Date: 20130325
  Receipt Date: 20130325
  Transmission Date: 20140127
  Serious: Yes (Hospitalization)
  Sender: FDA-Public Use
  Company Number: US-BRISTOL-MYERS SQUIBB COMPANY-17482852

PATIENT
  Age: 68 Year
  Sex: Male
  Weight: 108.7 kg

DRUGS (17)
  1. DASATINIB [Suspect]
     Indication: HEAD AND NECK CANCER
     Dosage: INTERR 12MAR13
     Route: 048
     Dates: start: 20130221
  2. CISPLATIN [Suspect]
     Indication: HEAD AND NECK CANCER
  3. CETUXIMAB [Suspect]
     Indication: HEAD AND NECK CANCER
  4. AMILORIDE [Concomitant]
  5. TIMOLOL [Concomitant]
  6. LASIX [Concomitant]
  7. METFORMIN [Concomitant]
  8. LIPITOR [Concomitant]
  9. LATANOPROST [Concomitant]
  10. MINOCYCLINE [Concomitant]
  11. CARAFATE [Concomitant]
  12. ZOFRAN [Concomitant]
  13. DECADRON [Concomitant]
  14. COMPAZINE [Concomitant]
  15. LACTULOSE [Concomitant]
  16. SENNA [Concomitant]
  17. GABAPENTIN [Concomitant]

REACTIONS (5)
  - Hypophosphataemia [Unknown]
  - Pyrexia [Unknown]
  - Blood creatinine increased [Unknown]
  - Thrombocytopenia [Unknown]
  - Sepsis [Unknown]
